FAERS Safety Report 21208592 (Version 3)
Quarter: 2022Q3

REPORT INFORMATION
  Report Type: Spontaneous
  Country: JP (occurrence: JP)
  Receive Date: 20220812
  Receipt Date: 20220824
  Transmission Date: 20221026
  Serious: No
  Sender: FDA-Public Use
  Company Number: JP-MSD-2208JPN000671J

PATIENT
  Age: 96 Year
  Sex: Female
  Weight: 25 kg

DRUGS (1)
  1. LAGEVRIO [Suspect]
     Active Substance: MOLNUPIRAVIR
     Indication: COVID-19 treatment
     Dosage: 400 MILLIGRAM, BID
     Route: 048
     Dates: start: 20220728, end: 20220801

REACTIONS (2)
  - Drug ineffective [Unknown]
  - Intentional underdose [Unknown]

NARRATIVE: CASE EVENT DATE: 20220728
